FAERS Safety Report 10654277 (Version 1)
Quarter: 2014Q4

REPORT INFORMATION
  Report Type: Spontaneous
  Country: US (occurrence: None)
  Receive Date: 20141215
  Receipt Date: 20141215
  Transmission Date: 20150529
  Serious: Yes (Hospitalization)
  Sender: FDA-Public Use
  Company Number: None

PATIENT
  Age: 52 Year
  Sex: Male
  Weight: 89.5 kg

DRUGS (1)
  1. LEVOFLOXACIN. [Suspect]
     Active Substance: LEVOFLOXACIN
     Indication: UPPER RESPIRATORY TRACT INFECTION
     Route: 048
     Dates: start: 20140915, end: 20140916

REACTIONS (5)
  - Throat tightness [None]
  - Feeling abnormal [None]
  - Dizziness [None]
  - Choking [None]
  - Respiratory distress [None]

NARRATIVE: CASE EVENT DATE: 20140916
